FAERS Safety Report 5776328-X (Version None)
Quarter: 2008Q2

REPORT INFORMATION
  Report Type: 
  Country: None (occurrence: None)
  Receive Date: 20080618
  Receipt Date: 20080326
  Transmission Date: 20081010
  Serious: No
  Sender: FDA-Public Use
  Company Number: US-BAYER-200818689NA

PATIENT
  Age: 19 Year
  Sex: Female
  Weight: 57 kg

DRUGS (1)
  1. YAZ [Suspect]
     Indication: CONTRACEPTION
     Route: 048
     Dates: start: 20080322

REACTIONS (4)
  - ABDOMINAL PAIN LOWER [None]
  - ANOREXIA [None]
  - DEPRESSION [None]
  - HEADACHE [None]
